FAERS Safety Report 21351283 (Version 2)
Quarter: 2022Q3

REPORT INFORMATION
  Report Type: Report from Study
  Country: BR (occurrence: BR)
  Receive Date: 20220919
  Receipt Date: 20220930
  Transmission Date: 20221027
  Serious: Yes (Other)
  Sender: FDA-Public Use
  Company Number: BR-BRISTOL-MYERS SQUIBB COMPANY-2022-105168

PATIENT
  Age: 65 Year
  Sex: Female
  Weight: 55 kg

DRUGS (11)
  1. NIVOLUMAB [Suspect]
     Active Substance: NIVOLUMAB
     Indication: Bladder cancer
     Dosage: ACTION TAKEN: DOSE DELAYED?THE PATIENT DID NOT RECEIVE BLINDED BMS-986205/PLACEBO STUDY THERAPY.
     Route: 042
     Dates: start: 20220816
  2. CISPLATIN [Suspect]
     Active Substance: CISPLATIN
     Indication: Bladder cancer
     Dosage: ACTION TAKEN: DOSE DELAYED?PRIOR TO THE ONSET OF THE EVENT, THE PATIENT RECEIVED HER LAST DOSE OF 55
     Route: 042
     Dates: start: 20220816
  3. CISPLATIN [Suspect]
     Active Substance: CISPLATIN
     Dosage: ACTION TAKEN: DOSE DELAYED
     Route: 042
     Dates: start: 20220823
  4. GEMCITABINE HYDROCHLORIDE [Suspect]
     Active Substance: GEMCITABINE HYDROCHLORIDE
     Indication: Bladder cancer
     Dosage: ACTION TAKEN: DOSE DELAYED?PRIOR TO THE ONSET OF THE EVENT, THE PATIENT RECEIVED HER LAST DOSE OF 15
     Route: 065
     Dates: start: 20220816
  5. GEMCITABINE HYDROCHLORIDE [Suspect]
     Active Substance: GEMCITABINE HYDROCHLORIDE
     Dosage: ACTION TAKEN: DOSE DELAYED
     Route: 065
     Dates: start: 20220823
  6. LOSARTAN [Concomitant]
     Active Substance: LOSARTAN
     Indication: Product used for unknown indication
     Dosage: ONGOING
     Route: 048
     Dates: start: 20190615
  7. ATENOLOL [Concomitant]
     Active Substance: ATENOLOL
     Indication: Product used for unknown indication
     Dosage: ONGOING
     Route: 048
     Dates: start: 20190615
  8. METFORMIN [Concomitant]
     Active Substance: METFORMIN HYDROCHLORIDE
     Indication: Product used for unknown indication
     Dosage: ONGOING
     Route: 048
     Dates: start: 20190615
  9. ZOLPIDEM [Concomitant]
     Active Substance: ZOLPIDEM TARTRATE
     Indication: Product used for unknown indication
     Dosage: ONGOING
     Route: 048
     Dates: start: 20170615
  10. QUETIAPINE [Concomitant]
     Active Substance: QUETIAPINE
     Indication: Product used for unknown indication
     Dosage: ONGOING
     Route: 048
     Dates: start: 20170615
  11. VALPROATE SODIUM [Concomitant]
     Active Substance: VALPROATE SODIUM
     Indication: Product used for unknown indication
     Dosage: ONGOING
     Route: 048
     Dates: start: 20170615

REACTIONS (1)
  - Neutrophil count decreased [Recovering/Resolving]

NARRATIVE: CASE EVENT DATE: 20220905
